FAERS Safety Report 20589048 (Version 1)
Quarter: 2022Q1

REPORT INFORMATION
  Report Type: Spontaneous
  Country: US (occurrence: None)
  Receive Date: 20220311
  Receipt Date: 20220311
  Transmission Date: 20220424
  Serious: Yes (Death)
  Sender: FDA-Public Use
  Company Number: None

PATIENT
  Age: 72 Year
  Sex: Female

DRUGS (10)
  1. TADALAFIL [Suspect]
     Active Substance: TADALAFIL
     Indication: Pulmonary hypertension
     Dosage: 20MG QD ORAL?
     Route: 048
     Dates: start: 20210507, end: 20220205
  2. TYVASO [Concomitant]
     Active Substance: TREPROSTINIL
  3. CARVEDILOL [Concomitant]
     Active Substance: CARVEDILOL
  4. PREDNISONE [Concomitant]
     Active Substance: PREDNISONE
  5. BUMEX [Concomitant]
     Active Substance: BUMETANIDE
  6. PRADAXA [Concomitant]
     Active Substance: DABIGATRAN ETEXILATE MESYLATE
  7. FAMOTIDINE [Concomitant]
     Active Substance: FAMOTIDINE
  8. LORAZEPAM [Concomitant]
     Active Substance: LORAZEPAM
  9. CALCIUM CARBONATE\CHOLECALCIFEROL [Concomitant]
     Active Substance: CALCIUM CARBONATE\CHOLECALCIFEROL
  10. FLONASE [Concomitant]
     Active Substance: FLUTICASONE PROPIONATE

REACTIONS (4)
  - Dyspnoea [None]
  - Acute respiratory failure [None]
  - Cardiac failure congestive [None]
  - Hypercapnia [None]

NARRATIVE: CASE EVENT DATE: 20220205
